FAERS Safety Report 4824217-7 (Version None)
Quarter: 2005Q4

REPORT INFORMATION
  Report Type: 
  Country: None (occurrence: None)
  Receive Date: 20051108
  Receipt Date: 20051026
  Transmission Date: 20060501
  Serious: Yes (Hospitalization, Other)
  Sender: FDA-Public Use
  Company Number: USA0510109858

PATIENT
  Age: 86 Year
  Sex: Female

DRUGS (7)
  1. FORTEO [Suspect]
     Indication: OSTEOPOROSIS
     Dosage: 20 UG DAY
     Dates: start: 20050101
  2. CALCIUM WITH VITAMIN D [Concomitant]
  3. HYDROCHLOROTHIAZIDE [Concomitant]
  4. CENTRUM SILVER [Concomitant]
  5. CELEBREX [Concomitant]
  6. ECOTRIN (ACETYLSALICYLIC ACID) [Concomitant]
  7. BISOPROLOL [Concomitant]

REACTIONS (6)
  - ASTHENIA [None]
  - CAROTID ARTERY OCCLUSION [None]
  - CEREBRAL ARTERY STENOSIS [None]
  - DYSARTHRIA [None]
  - PHARMACEUTICAL PRODUCT COMPLAINT [None]
  - TRANSIENT ISCHAEMIC ATTACK [None]
